FAERS Safety Report 18617713 (Version 18)
Quarter: 2022Q4

REPORT INFORMATION
  Report Type: Report from Study
  Country: US (occurrence: US)
  Receive Date: 20201215
  Receipt Date: 20221121
  Transmission Date: 20230113
  Serious: Yes (Other)
  Sender: FDA-Public Use
  Company Number: US-TAKEDA-2020TUS056488

PATIENT
  Age: 62 Year
  Sex: Female
  Weight: 50 kg

DRUGS (34)
  1. HUMAN IMMUNOGLOBULIN G [Suspect]
     Active Substance: HUMAN IMMUNOGLOBULIN G
     Indication: Hypergammaglobulinaemia
     Dosage: 6 GRAM, 1/WEEK
     Route: 058
     Dates: start: 20201203
  2. HUMAN IMMUNOGLOBULIN G [Suspect]
     Active Substance: HUMAN IMMUNOGLOBULIN G
     Indication: Immunodeficiency
  3. HUMAN IMMUNOGLOBULIN G [Suspect]
     Active Substance: HUMAN IMMUNOGLOBULIN G
     Indication: Infection
  4. DIPHENHYDRAMINE [Concomitant]
     Active Substance: DIPHENHYDRAMINE
     Dosage: UNK
  5. ZINC [Concomitant]
     Active Substance: ZINC
  6. EPINEPHRINE [Concomitant]
     Active Substance: EPINEPHRINE
  7. HERBALS\TURMERIC [Concomitant]
     Active Substance: HERBALS\TURMERIC
  8. SPIRIVA [Concomitant]
     Active Substance: TIOTROPIUM BROMIDE MONOHYDRATE
  9. BIOTIN [Concomitant]
     Active Substance: BIOTIN
  10. ACETAMINOPHEN [Concomitant]
     Active Substance: ACETAMINOPHEN
     Dosage: UNK
  11. ZOFRAN [Concomitant]
     Active Substance: ONDANSETRON HYDROCHLORIDE
  12. BROVANA [Concomitant]
     Active Substance: ARFORMOTEROL TARTRATE
     Dosage: UNK
  13. CEPHALEXIN [Concomitant]
     Active Substance: CEPHALEXIN
  14. AZELASTINE [Concomitant]
     Active Substance: AZELASTINE
     Dosage: UNK
  15. OXYGEN [Concomitant]
     Active Substance: OXYGEN
  16. CALADRYL [Concomitant]
     Active Substance: CALAMINE\DIPHENHYDRAMINE HYDROCHLORIDE\FERRIC OXIDE RED\PRAMOXINE HYDROCHLORIDE\ZINC OXIDE
  17. CRESTOR [Concomitant]
     Active Substance: ROSUVASTATIN CALCIUM
     Dosage: UNK
  18. VITAMIN A [Concomitant]
     Active Substance: VITAMIN A
     Route: 065
  19. VITAMIN C [Concomitant]
     Active Substance: ASCORBIC ACID
  20. MAGNESIUM [Concomitant]
     Active Substance: MAGNESIUM
     Dosage: UNK
  21. DESONIDE [Concomitant]
     Active Substance: DESONIDE
  22. PLAVIX [Concomitant]
     Active Substance: CLOPIDOGREL BISULFATE
     Dosage: UNK
  23. IVERMECTIN [Concomitant]
     Active Substance: IVERMECTIN
     Route: 065
  24. Lmx [Concomitant]
     Route: 065
  25. CVS COENZYME Q 10 [Concomitant]
  26. VITAMIN D2 [Concomitant]
     Active Substance: ERGOCALCIFEROL
  27. VITAMIN B12 [Concomitant]
     Active Substance: CYANOCOBALAMIN
  28. COENZYME Q10 [Concomitant]
     Active Substance: DIETARY SUPPLEMENT\UBIDECARENONE
  29. VITAMIN D [Concomitant]
     Active Substance: VITAMIN D NOS
  30. FLUBLOK [Concomitant]
     Active Substance: INFLUENZA A VIRUS A/CALIFORNIA/7/2009 (H1N1) RECOMBINANT HEMAGGLUTININ ANTIGEN\INFLUENZA A VIRUS A/V
     Dosage: UNK
  31. SPIRIVA RESPIMAT [Concomitant]
     Active Substance: TIOTROPIUM BROMIDE
  32. FLUBLOK QUADRIVALENT NOS [Concomitant]
     Active Substance: INFLUENZA VIRUS VACCINE
  33. AZELASTINE HYDROCHLORIDE [Concomitant]
     Active Substance: AZELASTINE HYDROCHLORIDE
  34. VITAMIN K [Concomitant]
     Active Substance: PHYTONADIONE
     Dosage: UNK
     Route: 065

REACTIONS (37)
  - Epstein-Barr virus infection [Unknown]
  - Metal poisoning [Unknown]
  - Sensitive skin [Unknown]
  - COVID-19 [Unknown]
  - Illness [Unknown]
  - Injection site rash [Unknown]
  - Rash [Unknown]
  - Ear pain [Unknown]
  - Sinusitis [Unknown]
  - Pruritus [Unknown]
  - Infusion site pain [Unknown]
  - Nausea [Unknown]
  - Diarrhoea [Unknown]
  - Chills [Unknown]
  - Headache [Unknown]
  - Eczema [Unknown]
  - Dermatitis [Unknown]
  - Influenza like illness [Unknown]
  - Candida infection [Unknown]
  - Pain [Unknown]
  - Back pain [Unknown]
  - Arthropod bite [Unknown]
  - Lymphadenopathy [Unknown]
  - Dizziness [Unknown]
  - Infection [Unknown]
  - Hypoaesthesia [Unknown]
  - Hypoaesthesia oral [Unknown]
  - Infusion related reaction [Unknown]
  - Gout [Unknown]
  - Infection parasitic [Not Recovered/Not Resolved]
  - Influenza [Unknown]
  - Infusion site bruising [Unknown]
  - Infusion site haemorrhage [Unknown]
  - Paraesthesia oral [Recovered/Resolved]
  - Urinary tract infection [Unknown]
  - Application site exfoliation [Unknown]
  - Intentional product use issue [Unknown]

NARRATIVE: CASE EVENT DATE: 20201203
